FAERS Safety Report 4340069-6 (Version None)
Quarter: 2004Q2

REPORT INFORMATION
  Report Type: 
  Country: None (occurrence: None)
  Receive Date: 20040415
  Receipt Date: 20040415
  Transmission Date: 20050107
  Serious: Yes (Hospitalization)
  Sender: FDA-Public Use
  Company Number: None

PATIENT
  Age: 68 Year
  Sex: Male
  Weight: 56.4 kg

DRUGS (16)
  1. WARFARIN SODIUM [Suspect]
     Indication: ATRIAL FIBRILLATION
     Dosage: 10 MG DAILY ORAL
     Route: 048
     Dates: start: 20031202, end: 20031204
  2. FORTAZ [Concomitant]
  3. DUONEBS [Concomitant]
  4. DIGOXIN [Concomitant]
  5. LEXAPRO [Concomitant]
  6. THIAMINE [Concomitant]
  7. VITC [Concomitant]
  8. ZINC [Concomitant]
  9. REGLAN [Concomitant]
  10. ZINC [Concomitant]
  11. ZANTAC [Concomitant]
  12. DITROPAN [Concomitant]
  13. LOPRESSOR [Concomitant]
  14. CARDIZEM [Concomitant]
  15. FLAGYL [Concomitant]
  16. VANCOMYCIN [Concomitant]

REACTIONS (2)
  - GASTROINTESTINAL HAEMORRHAGE [None]
  - HAEMATURIA [None]
